FAERS Safety Report 15700317 (Version 8)
Quarter: 2019Q3

REPORT INFORMATION
  Report Type: Report from Study
  Country: None (occurrence: JP)
  Receive Date: 20181207
  Receipt Date: 20190705
  Transmission Date: 20191004
  Serious: Yes (Life-Threatening, Hospitalization)
  Sender: FDA-Public Use
  Company Number: JP-ABBVIE-18K-087-2307651-00

PATIENT
  Age: 69 Year
  Sex: Male
  Weight: 67 kg

DRUGS (22)
  1. DUODOPA [Suspect]
     Active Substance: CARBIDOPA\LEVODOPA
     Dosage: MD: 7 ML CD: 2.4 ML/HR X 16HR ED: 1.0 ML/UNIT X 1
     Route: 050
     Dates: start: 20181003, end: 20181129
  2. TAMSULOSIN HYDROCHLORIDE. [Concomitant]
     Active Substance: TAMSULOSIN HYDROCHLORIDE
     Indication: PRODUCT USED FOR UNKNOWN INDICATION
     Route: 048
  3. PARKISTON [Concomitant]
     Active Substance: CARBIDOPA\LEVODOPA
     Indication: PARKINSON^S DISEASE
     Dosage: THE AMOUNT OF LEVODOPA CONVERTED TO 16-HOUR DOSE DURING DAYTIME WAS 1250 MG.
     Route: 048
     Dates: start: 201101
  4. CLONAZEPAM. [Concomitant]
     Active Substance: CLONAZEPAM
     Indication: PRODUCT USED FOR UNKNOWN INDICATION
     Route: 048
  5. DUODOPA [Suspect]
     Active Substance: CARBIDOPA\LEVODOPA
     Dosage: MD: 12 ML, CD: 3.2 ML/HR X 16 HR, ED: 1.0 ML/UNIT X 1
     Route: 050
     Dates: start: 20171115, end: 20171120
  6. DUODOPA [Suspect]
     Active Substance: CARBIDOPA\LEVODOPA
     Dosage: MD: 11 ML, CD: 3.2 ML/HR X 16 HR, ED: 1.0 ML/UNIT X 1
     Route: 050
     Dates: start: 20171121, end: 20171207
  7. ROTIGOTINE [Concomitant]
     Active Substance: ROTIGOTINE
     Indication: PARKINSON^S DISEASE
     Route: 062
     Dates: end: 20180801
  8. DUODOPA [Suspect]
     Active Substance: CARBIDOPA\LEVODOPA
     Indication: PARKINSON^S DISEASE
     Dosage: MD: 9 ML, CD: 3.4ML/HR X 16 HR, ED: 1.0 ML/UNIT X 1
     Route: 050
     Dates: start: 20171108, end: 20171113
  9. DUODOPA [Suspect]
     Active Substance: CARBIDOPA\LEVODOPA
     Dosage: MD: 7 ML, CD: 2.6 ML/HR X 16 HR, ED: 1.0 ML/UNIT X 1
     Route: 050
     Dates: start: 20171214, end: 20180627
  10. DUODOPA [Suspect]
     Active Substance: CARBIDOPA\LEVODOPA
     Dosage: MD: 7 ML CD: 2.5 ML/HR X 16HR ED: 1.0 ML/UNIT X 1
     Route: 050
     Dates: start: 20180627, end: 20181003
  11. DUODOPA [Suspect]
     Active Substance: CARBIDOPA\LEVODOPA
     Dosage: MD: 7 ML, CD: 2.9 ML/HR X 16 HR, ED: 1.0 ML/UNIT X 1
     Route: 050
     Dates: start: 20171212, end: 20171214
  12. CARBIDOPA HYDRATE - LEVODOPA MIXT [Concomitant]
     Indication: PARKINSON^S DISEASE
     Route: 048
     Dates: start: 20181130, end: 20181211
  13. DUODOPA [Suspect]
     Active Substance: CARBIDOPA\LEVODOPA
     Dosage: MD: 11 ML, CD: 3.0 ML/HR X 16 HR, ED: 1.0 ML/UNIT X 1
     Route: 050
     Dates: start: 20171207, end: 20171211
  14. ROTIGOTINE [Concomitant]
     Active Substance: ROTIGOTINE
     Route: 062
     Dates: start: 20180801
  15. SOLIFENACIN SUCCINATE. [Concomitant]
     Active Substance: SOLIFENACIN SUCCINATE
     Indication: PRODUCT USED FOR UNKNOWN INDICATION
     Route: 048
  16. IMATINIB MESILATE [Concomitant]
     Active Substance: IMATINIB MESYLATE
     Indication: PRODUCT USED FOR UNKNOWN INDICATION
     Route: 048
     Dates: end: 20180530
  17. CARBIDOPA-LEVODOPA-ENTACAPONE-MIXT [Concomitant]
     Indication: PARKINSON^S DISEASE
     Route: 048
     Dates: start: 20180801
  18. ESZOPICLONE. [Concomitant]
     Active Substance: ESZOPICLONE
     Indication: INSOMNIA
     Route: 048
     Dates: start: 20180110
  19. ENTACAPONE. [Concomitant]
     Active Substance: ENTACAPONE
     Indication: PARKINSON^S DISEASE
     Route: 048
     Dates: start: 20181130, end: 20181211
  20. DUODOPA [Suspect]
     Active Substance: CARBIDOPA\LEVODOPA
     Dosage: MD: 9 ML, CD: 3.2 ML/HR X 16 HR, ED: 1.0 ML/UNIT X 1
     Route: 050
     Dates: start: 20171113, end: 20171115
  21. DUODOPA [Suspect]
     Active Substance: CARBIDOPA\LEVODOPA
     Dosage: MD: 7 ML CD: 2.4 ML/HR ? 16 HRS ED: 1.0 ML/UNIT ? 1
     Route: 050
     Dates: start: 20181212
  22. PARKISTON [Concomitant]
     Active Substance: CARBIDOPA\LEVODOPA
     Route: 048
     Dates: start: 20171212

REACTIONS (10)
  - Mobility decreased [Unknown]
  - Asphyxia [Recovered/Resolved]
  - Somnolence [Recovering/Resolving]
  - Productive cough [Recovering/Resolving]
  - Dyskinesia [Recovering/Resolving]
  - Malaise [Unknown]
  - Pneumonia aspiration [Not Recovered/Not Resolved]
  - Dyspnoea [Recovering/Resolving]
  - Dyskinesia [Recovering/Resolving]
  - Insomnia [Recovering/Resolving]

NARRATIVE: CASE EVENT DATE: 20171109
